FAERS Safety Report 13059231 (Version 1)
Quarter: 2016Q4

REPORT INFORMATION
  Report Type: Spontaneous
  Country: US (occurrence: US)
  Receive Date: 20161223
  Receipt Date: 20161223
  Transmission Date: 20170207
  Serious: Yes (Disabling, Other)
  Sender: FDA-Public Use
  Company Number: US-ELI_LILLY_AND_COMPANY-US201612005420

PATIENT
  Age: 69 Year
  Sex: Female

DRUGS (2)
  1. HUMALOG [Suspect]
     Active Substance: INSULIN LISPRO
     Indication: DIABETES MELLITUS
     Dosage: UNK, UNKNOWN
     Route: 065
  2. HUMALOG [Suspect]
     Active Substance: INSULIN LISPRO
     Dosage: UNK, UNKNOWN
     Route: 065

REACTIONS (9)
  - Cardiac failure congestive [Unknown]
  - Dyspnoea [Unknown]
  - Blood creatinine abnormal [Unknown]
  - Cerebrovascular accident [Unknown]
  - Vascular stent occlusion [Unknown]
  - Cerebrovascular accident [Unknown]
  - Blood cholesterol increased [Unknown]
  - Drug dose omission [Unknown]
  - Thrombosis [Unknown]

NARRATIVE: CASE EVENT DATE: 201408
